FAERS Safety Report 25970694 (Version 1)
Quarter: 2025Q4

REPORT INFORMATION
  Report Type: Spontaneous
  Country: AE (occurrence: AE)
  Receive Date: 20251028
  Receipt Date: 20251028
  Transmission Date: 20260118
  Serious: Yes (Hospitalization, Other)
  Sender: ASCENT PHARMACEUTICALS INC
  Company Number: AE-ASCENT-2025ASLIT00245

PATIENT
  Age: 30 Year
  Sex: Female

DRUGS (2)
  1. PALIPERIDONE [Suspect]
     Active Substance: PALIPERIDONE
     Indication: Mania
     Route: 065
  2. VALPROATE SODIUM [Suspect]
     Active Substance: VALPROATE SODIUM
     Indication: Mania
     Route: 065

REACTIONS (5)
  - Gender dysphoria [Recovered/Resolved]
  - Delusion [Recovered/Resolved]
  - Hirsutism [Unknown]
  - Amenorrhoea [Unknown]
  - Hyperprolactinaemia [Unknown]
